FAERS Safety Report 14779767 (Version 7)
Quarter: 2020Q2

REPORT INFORMATION
  Report Type: Spontaneous
  Country: US (occurrence: US)
  Receive Date: 20180419
  Receipt Date: 20200604
  Transmission Date: 20200713
  Serious: Yes (Other)
  Sender: FDA-Public Use
  Company Number: US-PFIZER INC-2018159616

PATIENT
  Age: 61 Year
  Sex: Male

DRUGS (4)
  1. XELJANZ XR [Suspect]
     Active Substance: TOFACITINIB CITRATE
     Indication: RHEUMATOID ARTHRITIS
     Dosage: 11 MG, ONCE DAILY
     Route: 048
     Dates: start: 20180222, end: 201807
  2. OLMESARTAN MEDOXOMIL. [Concomitant]
     Active Substance: OLMESARTAN MEDOXOMIL
     Dosage: 20 MG
  3. XELJANZ XR [Suspect]
     Active Substance: TOFACITINIB CITRATE
     Dosage: 11 MG, DAILY
     Route: 048
     Dates: start: 201803
  4. CEPHALEXIN [CEFALEXIN] [Concomitant]
     Active Substance: CEPHALEXIN
     Dosage: 500 MG

REACTIONS (14)
  - Chest pain [Unknown]
  - Peripheral swelling [Unknown]
  - Mouth ulceration [Unknown]
  - Oral infection [Unknown]
  - Costochondritis [Recovered/Resolved]
  - Prostate infection [Unknown]
  - Hypertension [Unknown]
  - Nasopharyngitis [Unknown]
  - Immune system disorder [Unknown]
  - Infection [Unknown]
  - Urinary tract infection [Unknown]
  - Back pain [Unknown]
  - Kidney infection [Unknown]
  - Pain in extremity [Unknown]

NARRATIVE: CASE EVENT DATE: 201807
